FAERS Safety Report 11926529 (Version 1)
Quarter: 2016Q1

REPORT INFORMATION
  Report Type: Spontaneous
  Country: US (occurrence: US)
  Receive Date: 20160119
  Receipt Date: 20160119
  Transmission Date: 20160526
  Serious: Yes (Other)
  Sender: FDA-Public Use
  Company Number: US-MYLANLABS-2016M1001631

PATIENT

DRUGS (2)
  1. FLUOXETINE [Suspect]
     Active Substance: FLUOXETINE HYDROCHLORIDE
     Indication: MAJOR DEPRESSION
     Dosage: 20 MG, QD
  2. DESIPRAMINE [Suspect]
     Active Substance: DESIPRAMINE
     Indication: MAJOR DEPRESSION
     Dosage: 100 MG, QD

REACTIONS (2)
  - Epilepsy [Unknown]
  - Drug interaction [Unknown]
